FAERS Safety Report 6678235-7 (Version None)
Quarter: 2010Q2

REPORT INFORMATION
  Report Type: 
  Country: None (occurrence: None)
  Receive Date: 20100408
  Receipt Date: 20100408
  Transmission Date: 20101027
  Serious: No
  Sender: FDA-Public Use
  Company Number: None

PATIENT
  Age: 63 Year
  Sex: Male
  Weight: 100 kg

DRUGS (1)
  1. HEPARIN [Suspect]
     Indication: PULMONARY EMBOLISM
     Dosage: VARIED CONTINUOUS INFUSION IV
     Route: 042
     Dates: start: 20100404, end: 20100406

REACTIONS (2)
  - ACTIVATED PARTIAL THROMBOPLASTIN TIME PROLONGED [None]
  - DRUG INEFFECTIVE [None]
